FAERS Safety Report 16974737 (Version 6)
Quarter: 2020Q4

REPORT INFORMATION
  Report Type: Report from Study
  Country: FR (occurrence: FR)
  Receive Date: 20191030
  Receipt Date: 20201110
  Transmission Date: 20210113
  Serious: Yes (Other)
  Sender: FDA-Public Use
  Company Number: FR-KARYOPHARM THERAPEUTICS, INC.-2019KPT000709

PATIENT
  Age: 63 Year
  Sex: Male
  Weight: 72 kg

DRUGS (7)
  1. ZOPHREN [Concomitant]
     Active Substance: ONDANSETRON
     Indication: PRODUCT USED FOR UNKNOWN INDICATION
  2. CHARBON DE BELLOC [Concomitant]
     Indication: PRODUCT USED FOR UNKNOWN INDICATION
  3. MOVICOL APELSIN [Concomitant]
     Active Substance: POLYETHYLENE GLYCOL 3350\POTASSIUM CHLORIDE\SODIUM BICARBONATE\SODIUM CHLORIDE
     Indication: PRODUCT USED FOR UNKNOWN INDICATION
  4. GAVISCON ACID BREAKTHROUGH FORMULA [Concomitant]
     Indication: PRODUCT USED FOR UNKNOWN INDICATION
  5. SELINEXOR [Suspect]
     Active Substance: SELINEXOR
     Indication: LIPOSARCOMA
     Dates: start: 20190217, end: 20190805
  6. PREDNISONE. [Concomitant]
     Active Substance: PREDNISONE
     Indication: PRODUCT USED FOR UNKNOWN INDICATION
  7. PRIMPERAN COMPLEX [Concomitant]
     Indication: PRODUCT USED FOR UNKNOWN INDICATION

REACTIONS (1)
  - Myelodysplastic syndrome [Not Recovered/Not Resolved]

NARRATIVE: CASE EVENT DATE: 20191014
